FAERS Safety Report 18782421 (Version 1)
Quarter: 2021Q1

REPORT INFORMATION
  Report Type: Spontaneous
  Country: US (occurrence: US)
  Receive Date: 20210125
  Receipt Date: 20210125
  Transmission Date: 20210419
  Serious: Yes (Other)
  Sender: FDA-Public Use
  Company Number: US-ACCORD-215454

PATIENT
  Age: 94 Year
  Sex: Female

DRUGS (5)
  1. QUETIAPINE. [Suspect]
     Active Substance: QUETIAPINE
     Indication: AGITATION
     Dosage: 25 MG PRN DAILY
  2. QUETIAPINE. [Suspect]
     Active Substance: QUETIAPINE
     Indication: AGITATION
     Dosage: QUETIAPINE WAS DOUBLED TWICE
  3. QUETIAPINE. [Suspect]
     Active Substance: QUETIAPINE
     Indication: AGITATION
     Dosage: NIGHTLY
  4. QUETIAPINE. [Suspect]
     Active Substance: QUETIAPINE
     Indication: AGITATION
     Dosage: QUETIAPINE WAS DOUBLED TWICE
  5. QUETIAPINE. [Suspect]
     Active Substance: QUETIAPINE
     Indication: AGITATION
     Dosage: 25 MG PRN DAILY

REACTIONS (3)
  - Fall [Unknown]
  - Hip fracture [Unknown]
  - Product prescribing issue [Unknown]
